FAERS Safety Report 6106891-0 (Version None)
Quarter: 2009Q1

REPORT INFORMATION
  Report Type: 
  Country: None (occurrence: None)
  Receive Date: 20090305
  Receipt Date: 20090220
  Transmission Date: 20090719
  Serious: Yes (Hospitalization)
  Sender: FDA-Public Use
  Company Number: 2009000495

PATIENT
  Age: 55 Year
  Sex: Male
  Weight: 81.6475 kg

DRUGS (19)
  1. ERLOTINIB (ERLOTINIB) (TABLET) (ERLOTINIB) [Suspect]
     Indication: NON-SMALL CELL LUNG CANCER METASTATIC
     Dosage: QD, ORAL
     Route: 048
     Dates: start: 20090113, end: 20090203
  2. ARQ 197/ PLACEBO [Suspect]
     Indication: NON-SMALL CELL LUNG CANCER METASTATIC
     Dosage: 360 MG, BID, ORAL
     Route: 048
     Dates: start: 20090113, end: 20090127
  3. ACIPHEX (RABEPRAOLE SODIUM) [Concomitant]
  4. LOTREL (LORTREL) [Concomitant]
  5. ADVAIR HFA [Concomitant]
  6. NEURONTIN [Concomitant]
  7. ZOLOFT [Concomitant]
  8. COUMADIN [Concomitant]
  9. METFORMIN HCL [Concomitant]
  10. ZOFRAN [Concomitant]
  11. TYLOX (TYLOX) [Concomitant]
  12. LUNESTA [Concomitant]
  13. AMBIEN [Concomitant]
  14. MARINOL [Concomitant]
  15. PHENERGAN [Concomitant]
  16. ARANESP [Concomitant]
  17. IMODIUM [Concomitant]
  18. PERIACTIN [Concomitant]
  19. LOMOTIL [Concomitant]

REACTIONS (4)
  - BACTERIA STOOL IDENTIFIED [None]
  - CULTURE STOOL POSITIVE [None]
  - DIARRHOEA [None]
  - NEUTROPENIA [None]
